FAERS Safety Report 24636422 (Version 3)
Quarter: 2025Q3

REPORT INFORMATION
  Report Type: Report from Study
  Country: CA (occurrence: CA)
  Receive Date: 20241119
  Receipt Date: 20250904
  Transmission Date: 20251020
  Serious: Yes (Other)
  Sender: CSL BEHRING
  Company Number: CA-BEH-2024173448

PATIENT
  Age: 56 Year
  Sex: Male
  Weight: 88.6 kg

DRUGS (28)
  1. BERINERT [Suspect]
     Active Substance: HUMAN C1-ESTERASE INHIBITOR
     Indication: Hereditary angioedema
     Dosage: 6000 IU, TIW
     Route: 058
     Dates: start: 20221226
  2. BERINERT [Suspect]
     Active Substance: HUMAN C1-ESTERASE INHIBITOR
     Indication: Prophylaxis
     Route: 042
  3. HAEGARDA [Suspect]
     Active Substance: HUMAN C1-ESTERASE INHIBITOR
     Indication: Hereditary angioedema
     Dosage: 4500 IU, BIW
     Route: 058
     Dates: start: 20221226, end: 20240604
  4. HAEGARDA [Suspect]
     Active Substance: HUMAN C1-ESTERASE INHIBITOR
     Indication: Prophylaxis
     Dosage: 4500 IU, BIW
     Route: 058
     Dates: start: 20240605
  5. HAEGARDA [Suspect]
     Active Substance: HUMAN C1-ESTERASE INHIBITOR
     Route: 042
  6. HAEGARDA [Suspect]
     Active Substance: HUMAN C1-ESTERASE INHIBITOR
     Dosage: 4000 IU, BIW
     Route: 058
     Dates: start: 20221226, end: 20240604
  7. HAEGARDA [Suspect]
     Active Substance: HUMAN C1-ESTERASE INHIBITOR
     Dosage: 4000 IU, BIW
     Route: 058
     Dates: start: 20240605
  8. BERINERT [Suspect]
     Active Substance: HUMAN C1-ESTERASE INHIBITOR
     Indication: Prophylaxis
     Dosage: 2000 IU, TIW
     Route: 058
     Dates: start: 20221226
  9. BERINERT [Suspect]
     Active Substance: HUMAN C1-ESTERASE INHIBITOR
     Indication: Hereditary angioedema
     Route: 058
  10. BERINERT [Suspect]
     Active Substance: HUMAN C1-ESTERASE INHIBITOR
     Indication: Prophylaxis
     Dosage: 2000 IU, BIW
     Route: 058
     Dates: start: 20221226
  11. BERINERT [Suspect]
     Active Substance: HUMAN C1-ESTERASE INHIBITOR
     Route: 058
     Dates: start: 20221226, end: 20250707
  12. BERINERT [Suspect]
     Active Substance: HUMAN C1-ESTERASE INHIBITOR
     Route: 065
     Dates: start: 20250415
  13. PANTOPRAZOLE [Concomitant]
     Active Substance: PANTOPRAZOLE
  14. FIRAZYR [Concomitant]
     Active Substance: ICATIBANT ACETATE
  15. TRAZODONE [Concomitant]
     Active Substance: TRAZODONE HYDROCHLORIDE
  16. VENLAFAXINE [Concomitant]
     Active Substance: VENLAFAXINE HYDROCHLORIDE
  17. VITAMIN B6 [Concomitant]
     Active Substance: PYRIDOXINE HYDROCHLORIDE
  18. VITAMIN B12 [Concomitant]
     Active Substance: CYANOCOBALAMIN
  19. BACLOFEN [Concomitant]
     Active Substance: BACLOFEN
  20. CELEBREX [Concomitant]
     Active Substance: CELECOXIB
  21. ORLADEYO [Concomitant]
     Active Substance: BEROTRALSTAT HYDROCHLORIDE
  22. CYANOCOBALAMIN [Concomitant]
     Active Substance: CYANOCOBALAMIN
  23. ICATIBANT ACETATE [Concomitant]
     Active Substance: ICATIBANT ACETATE
  24. BERINERT [Concomitant]
     Active Substance: HUMAN C1-ESTERASE INHIBITOR
     Indication: Hereditary angioedema
     Route: 042
  25. BERINERT [Concomitant]
     Active Substance: HUMAN C1-ESTERASE INHIBITOR
     Indication: Hereditary angioedema
     Route: 042
  26. Pantaloc [Concomitant]
  27. EFFEXOR [Concomitant]
     Active Substance: VENLAFAXINE HYDROCHLORIDE
  28. LORAZEPAM [Concomitant]
     Active Substance: LORAZEPAM

REACTIONS (18)
  - Hereditary angioedema [Recovered/Resolved]
  - Hereditary angioedema [Recovered/Resolved]
  - Hereditary angioedema [Recovered/Resolved]
  - Hereditary angioedema [Recovered/Resolved]
  - Hereditary angioedema [Recovered/Resolved]
  - COVID-19 [Recovered/Resolved]
  - Drug titration [Unknown]
  - Arthralgia [Not Recovered/Not Resolved]
  - Burning sensation [Not Recovered/Not Resolved]
  - Restless legs syndrome [Unknown]
  - Meralgia paraesthetica [Unknown]
  - Pain [Unknown]
  - Arthritis [Unknown]
  - Off label use [Unknown]
  - Off label use [Unknown]
  - Off label use [Unknown]
  - Therapy cessation [Unknown]
  - Therapy change [Unknown]

NARRATIVE: CASE EVENT DATE: 20240101
